FAERS Safety Report 9061741 (Version 1)
Quarter: 2013Q1

REPORT INFORMATION
  Report Type: Spontaneous
  Country: US (occurrence: None)
  Receive Date: 20130118
  Receipt Date: 20130118
  Transmission Date: 20140127
  Serious: Yes (Hospitalization)
  Sender: FDA-Public Use
  Company Number: DSA_61863_2013

PATIENT
  Age: 26 Month
  Sex: Female

DRUGS (1)
  1. XENAZINE 25 MG (NOT SPECIFIED) [Suspect]
     Indication: CHOREA
     Dosage: G-TUBE
     Dates: start: 20111213

REACTIONS (2)
  - Respiratory disorder [None]
  - Foreign body [None]
